FAERS Safety Report 21875492 (Version 1)
Quarter: 2023Q1

REPORT INFORMATION
  Report Type: Spontaneous
  Country: GB (occurrence: GB)
  Receive Date: 20230118
  Receipt Date: 20230118
  Transmission Date: 20230418
  Serious: Yes (Hospitalization)
  Sender: FDA-Public Use
  Company Number: GB-TAKEDA-2020TUS043796

PATIENT
  Age: 62 Year
  Sex: Male

DRUGS (9)
  1. LENALIDOMIDE [Suspect]
     Active Substance: LENALIDOMIDE
     Indication: Plasma cell myeloma
     Route: 065
     Dates: start: 20190510, end: 20210218
  2. LENALIDOMIDE [Suspect]
     Active Substance: LENALIDOMIDE
     Route: 065
     Dates: start: 20201014, end: 20210824
  3. LENALIDOMIDE [Suspect]
     Active Substance: LENALIDOMIDE
     Dates: start: 20190518
  4. DEXAMETHASONE [Suspect]
     Active Substance: DEXAMETHASONE
     Indication: Plasma cell myeloma
     Route: 065
     Dates: start: 20201014, end: 20210824
  5. DEXAMETHASONE [Suspect]
     Active Substance: DEXAMETHASONE
     Route: 048
     Dates: start: 20190510, end: 20210218
  6. DEXAMETHASONE [Suspect]
     Active Substance: DEXAMETHASONE
     Dates: start: 20190518
  7. NINLARO [Suspect]
     Active Substance: IXAZOMIB CITRATE
     Indication: Plasma cell myeloma
     Route: 065
     Dates: start: 20201014, end: 20210824
  8. NINLARO [Suspect]
     Active Substance: IXAZOMIB CITRATE
     Route: 048
     Dates: start: 20190510, end: 20210218
  9. NINLARO [Suspect]
     Active Substance: IXAZOMIB CITRATE
     Route: 048
     Dates: start: 20190518

REACTIONS (8)
  - Lower respiratory tract infection [Recovering/Resolving]
  - Upper respiratory tract infection [Recovering/Resolving]
  - Off label use [Unknown]
  - Neck pain [Not Recovered/Not Resolved]
  - Back pain [Not Recovered/Not Resolved]
  - Hepatic function abnormal [Recovered/Resolved]
  - Illness [Recovered/Resolved]
  - Diarrhoea [Recovered/Resolved]

NARRATIVE: CASE EVENT DATE: 20210218
